FAERS Safety Report 7705973-7 (Version None)
Quarter: 2011Q3

REPORT INFORMATION
  Report Type: 
  Country: None (occurrence: None)
  Receive Date: 20110824
  Receipt Date: 20110809
  Transmission Date: 20111222
  Serious: Yes (Other)
  Sender: FDA-Public Use
  Company Number: PHHY2010JP51273

PATIENT
  Sex: Male
  Weight: 54 kg

DRUGS (7)
  1. PLAVIX [Concomitant]
     Dosage: 75 MG, UNK
     Route: 048
     Dates: start: 20080702
  2. BERIZYM [Concomitant]
     Dosage: 3 G, UNK
     Route: 048
     Dates: start: 20080807
  3. VALSARTAN [Suspect]
     Dosage: 160 MG, UNK
     Route: 048
     Dates: start: 20080711
  4. VALSARTAN [Suspect]
     Dosage: 80 MG, UNK
     Route: 048
     Dates: start: 20080701, end: 20080710
  5. MAGMITT [Concomitant]
     Dosage: 1 G, UNK
     Route: 048
     Dates: start: 20080815
  6. URSO 250 [Concomitant]
     Dosage: 200 MG, UNK
     Route: 048
     Dates: start: 20080807
  7. AMLODIPINE [Concomitant]
     Indication: HYPERTENSION
     Dosage: 10 MG, UNK
     Route: 048
     Dates: start: 20080704

REACTIONS (3)
  - GLUCOSE URINE PRESENT [None]
  - GASTRIC CANCER [None]
  - BLOOD PRESSURE DIASTOLIC DECREASED [None]
